FAERS Safety Report 14315378 (Version 2)
Quarter: 2018Q1

REPORT INFORMATION
  Report Type: Report from Study
  Country: US (occurrence: US)
  Receive Date: 20171221
  Receipt Date: 20180125
  Transmission Date: 20180509
  Serious: Yes (Death, Hospitalization)
  Sender: FDA-Public Use
  Company Number: US-ACTELION-A-NJ2017-164238

PATIENT
  Age: 72 Year
  Sex: Female

DRUGS (4)
  1. METHIMAZOLE. [Concomitant]
     Active Substance: METHIMAZOLE
  2. PREDNISONE. [Concomitant]
     Active Substance: PREDNISONE
     Dosage: 5 MG, UNK
  3. PREDNISONE. [Concomitant]
     Active Substance: PREDNISONE
     Dosage: 40 MG, UNK
  4. OPSUMIT [Suspect]
     Active Substance: MACITENTAN
     Indication: PULMONARY ARTERIAL HYPERTENSION
     Dosage: 10 MG, UNK
     Route: 048
     Dates: start: 20170711, end: 20171125

REACTIONS (19)
  - Fatigue [Unknown]
  - Pulseless electrical activity [Unknown]
  - Chest pain [Unknown]
  - Chromaturia [Unknown]
  - Back pain [Unknown]
  - Blood lactic acid increased [Unknown]
  - Respiratory failure [Unknown]
  - Burning sensation [Unknown]
  - Haemoglobin decreased [Fatal]
  - Feeling abnormal [Unknown]
  - Cough [Unknown]
  - Unresponsive to stimuli [Unknown]
  - Bradycardia [Unknown]
  - Shock [Fatal]
  - Autoimmune haemolytic anaemia [Fatal]
  - Haematocrit decreased [Fatal]
  - Condition aggravated [Unknown]
  - Transfusion [Unknown]
  - Troponin increased [Unknown]

NARRATIVE: CASE EVENT DATE: 201711
